FAERS Safety Report 7803535-4 (Version None)
Quarter: 2011Q4

REPORT INFORMATION
  Report Type: 
  Country: None (occurrence: None)
  Receive Date: 20111009
  Receipt Date: 20111004
  Transmission Date: 20120403
  Serious: Yes (Death, Hospitalization)
  Sender: FDA-Public Use
  Company Number: FR-SP-2011-09083

PATIENT
  Sex: Male

DRUGS (1)
  1. IMMUCYST [Suspect]
     Indication: BLADDER CANCER
     Route: 043
     Dates: start: 20110627, end: 20110822

REACTIONS (9)
  - DYSPEPSIA [None]
  - INSOMNIA [None]
  - MITRAL VALVE INCOMPETENCE [None]
  - PYREXIA [None]
  - ASTHENIA [None]
  - HYPERHIDROSIS [None]
  - ENDOCARDITIS [None]
  - HEADACHE [None]
  - ISCHAEMIC STROKE [None]
